FAERS Safety Report 5782037-3 (Version None)
Quarter: 2008Q2

REPORT INFORMATION
  Report Type: 
  Country: None (occurrence: None)
  Receive Date: 20080623
  Receipt Date: 20080612
  Transmission Date: 20081010
  Serious: Yes (Hospitalization)
  Sender: FDA-Public Use
  Company Number: FR-MERCK-0806FRA00028

PATIENT
  Age: 39 Year
  Sex: Female

DRUGS (5)
  1. ISENTRESS [Suspect]
     Indication: HIV INFECTION
     Route: 048
     Dates: start: 20080301, end: 20080401
  2. ISENTRESS [Suspect]
     Route: 048
     Dates: start: 20080401, end: 20080602
  3. FOSAMPRENAVIR CALCIUM [Concomitant]
     Indication: HIV INFECTION
     Route: 048
     Dates: start: 20050414
  4. LOPINAVIR AND RITONAVIR [Concomitant]
     Indication: HIV INFECTION
     Route: 048
     Dates: start: 20070226
  5. SULFAMETHOXAZOLE AND TRIMETHOPRIM [Concomitant]
     Route: 048
     Dates: start: 20050405

REACTIONS (2)
  - ARTHRALGIA [None]
  - RASH PAPULAR [None]
